FAERS Safety Report 9500618 (Version 3)
Quarter: 2013Q4

REPORT INFORMATION
  Report Type: Report from Study
  Country: DE (occurrence: DE)
  Receive Date: 20130905
  Receipt Date: 20131007
  Transmission Date: 20140711
  Serious: Yes (Hospitalization)
  Sender: FDA-Public Use
  Company Number: DE-JNJFOC-20130817439

PATIENT
  Age: 60 Year
  Sex: Male

DRUGS (6)
  1. SIMPONI [Suspect]
     Indication: PSORIATIC ARTHROPATHY
     Route: 058
     Dates: start: 201304, end: 20130828
  2. METHOTREXATE [Suspect]
     Indication: PSORIATIC ARTHROPATHY
     Route: 065
     Dates: start: 201111, end: 20130828
  3. PREDNISOLONE [Suspect]
     Indication: PSORIATIC ARTHROPATHY
     Route: 065
  4. PANTOPRAZOL [Concomitant]
     Indication: PROPHYLAXIS
     Route: 065
  5. L-THYROXIN [Concomitant]
     Indication: HYPOTHYROIDISM
     Route: 065
  6. VOTUMPLUS [Concomitant]
     Indication: HYPERTENSION
     Route: 065

REACTIONS (1)
  - Pulmonary sepsis [Recovered/Resolved]
